FAERS Safety Report 15590039 (Version 1)
Quarter: 2018Q4

REPORT INFORMATION
  Report Type: Spontaneous
  Country: US (occurrence: US)
  Receive Date: 20181106
  Receipt Date: 20181106
  Transmission Date: 20190205
  Serious: Yes (Other)
  Sender: FDA-Public Use
  Company Number: US-MYLANLABS-2018M1082816

PATIENT
  Age: 86 Year
  Sex: Female

DRUGS (3)
  1. GLYCERYL TRINITRATE [Suspect]
     Active Substance: NITROGLYCERIN
     Indication: MYOCARDIAL INFARCTION
     Route: 060
  2. TETROFOSMIN. [Concomitant]
     Active Substance: TETROFOSMIN
     Indication: RADIOTHERAPY
     Route: 065
  3. REGADENOSON [Suspect]
     Active Substance: REGADENOSON
     Indication: VASODILATION PROCEDURE
     Dosage: ADMINISTERED OVER 30 SECONDS.
     Route: 041

REACTIONS (6)
  - Myocardial infarction [Recovered/Resolved]
  - Hypotension [Recovered/Resolved]
  - Condition aggravated [Recovered/Resolved]
  - Lethargy [Recovered/Resolved]
  - Mental status changes [Recovered/Resolved]
  - Right ventricular dysfunction [Recovered/Resolved]
